FAERS Safety Report 9383451 (Version 1)
Quarter: 2013Q3

REPORT INFORMATION
  Report Type: Spontaneous
  Country: KR (occurrence: KR)
  Receive Date: 20130704
  Receipt Date: 20130704
  Transmission Date: 20140515
  Serious: Yes (Other)
  Sender: FDA-Public Use
  Company Number: KR-PFIZER INC-2013192251

PATIENT
  Sex: Male

DRUGS (2)
  1. XALATAN [Suspect]
     Indication: GLAUCOMA
     Dosage: USED 2 TO 3 DAYS PER MONTH
     Dates: start: 20090702, end: 200908
  2. XALATAN [Suspect]
     Dosage: USED DAILY
     Dates: start: 200909, end: 200911

REACTIONS (4)
  - Intraocular pressure test abnormal [Unknown]
  - Incorrect dose administered [Unknown]
  - Blindness [Not Recovered/Not Resolved]
  - Incorrect product storage [Unknown]
